FAERS Safety Report 7805898-2 (Version None)
Quarter: 2011Q4

REPORT INFORMATION
  Report Type: 
  Country: None (occurrence: None)
  Receive Date: 20111011
  Receipt Date: 20081114
  Transmission Date: 20120403
  Serious: No
  Sender: FDA-Public Use
  Company Number: 2008BI030916

PATIENT
  Sex: Female

DRUGS (1)
  1. TYSABRI [Suspect]
     Indication: MULTIPLE SCLEROSIS
     Route: 042
     Dates: start: 20071214

REACTIONS (7)
  - FALL [None]
  - SINUS HEADACHE [None]
  - FACIAL BONES FRACTURE [None]
  - ASTHENIA [None]
  - HEADACHE [None]
  - ACARODERMATITIS [None]
  - BACK PAIN [None]
